FAERS Safety Report 5922640-0 (Version None)
Quarter: 2008Q3

REPORT INFORMATION
  Report Type: 
  Country: None (occurrence: None)
  Receive Date: 20080909
  Receipt Date: 20070918
  Transmission Date: 20090109
  Serious: Yes (Other)
  Sender: FDA-Public Use
  Company Number: 163-20785-06040877

PATIENT
  Age: 72 Year
  Sex: Female

DRUGS (2)
  1. THALOMID [Suspect]
     Indication: MULTIPLE MYELOMA
     Dosage: 200 MG, ONE DOSE, ORAL
     Route: 048
     Dates: start: 20060101
  2. DECADRON [Suspect]
     Indication: MULTIPLE MYELOMA

REACTIONS (2)
  - HALLUCINATION, AUDITORY [None]
  - SOMNOLENCE [None]
